FAERS Safety Report 25984354 (Version 1)
Quarter: 2025Q4

REPORT INFORMATION
  Report Type: Spontaneous
  Country: US (occurrence: None)
  Receive Date: 20251030
  Receipt Date: 20251030
  Transmission Date: 20260118
  Serious: Yes (unspecified)
  Sender: FDA-CTU
  Company Number: None

PATIENT
  Age: 65 Year
  Sex: Male
  Weight: 78 kg

DRUGS (2)
  1. ENBREL [Suspect]
     Active Substance: ETANERCEPT
     Indication: Rheumatoid arthritis
     Dosage: 1 ML EVERY WEEKS SUBCUTANEOUS ?
     Route: 058
     Dates: start: 20250911, end: 20251024
  2. ADALIMUMAB [Concomitant]
     Active Substance: ADALIMUMAB
     Dates: start: 20250911, end: 20251017

REACTIONS (3)
  - Skin disorder [None]
  - Pruritus [None]
  - Nasal disorder [None]

NARRATIVE: CASE EVENT DATE: 20251024
